FAERS Safety Report 22137568 (Version 1)
Quarter: 2023Q1

REPORT INFORMATION
  Report Type: Report from Study
  Country: US (occurrence: US)
  Receive Date: 20230325
  Receipt Date: 20230325
  Transmission Date: 20230418
  Serious: Yes (Other)
  Sender: FDA-Public Use
  Company Number: US-TAIHO-2023-002049

PATIENT
  Age: 50 Year
  Sex: Male
  Weight: 58.65 kg

DRUGS (2)
  1. LONSURF [Suspect]
     Active Substance: TIPIRACIL HYDROCHLORIDE\TRIFLURIDINE
     Indication: Colon cancer
     Dosage: CURRENT CYCLE UNKNOWN
     Route: 048
     Dates: end: 20230310
  2. STIVARGA [Suspect]
     Active Substance: REGORAFENIB
     Indication: Product used for unknown indication
     Route: 065
     Dates: start: 202303

REACTIONS (3)
  - Tumour haemorrhage [Unknown]
  - Dizziness [Unknown]
  - Disease progression [Unknown]

NARRATIVE: CASE EVENT DATE: 20230310
